FAERS Safety Report 12601990 (Version 3)
Quarter: 2016Q3

REPORT INFORMATION
  Report Type: Spontaneous
  Country: US (occurrence: US)
  Receive Date: 20160728
  Receipt Date: 20160823
  Transmission Date: 20161109
  Serious: Yes (Other)
  Sender: FDA-Public Use
  Company Number: US-ROCHE-1803461

PATIENT
  Sex: Male

DRUGS (1)
  1. ESBRIET [Suspect]
     Active Substance: PIRFENIDONE
     Indication: IDIOPATHIC PULMONARY FIBROSIS
     Route: 048
     Dates: start: 20160702, end: 20160804

REACTIONS (7)
  - Insomnia [Unknown]
  - Asthenia [Unknown]
  - Muscle spasms [Unknown]
  - Abdominal discomfort [Unknown]
  - Decreased appetite [Unknown]
  - Chest pain [Unknown]
  - Herpes zoster [Unknown]
